FAERS Safety Report 8002159-6 (Version None)
Quarter: 2011Q4

REPORT INFORMATION
  Report Type: 
  Country: None (occurrence: None)
  Receive Date: 20111220
  Receipt Date: 20111208
  Transmission Date: 20120403
  Serious: Yes (Death, Hospitalization)
  Sender: FDA-Public Use
  Company Number: 2011HGS-002523

PATIENT
  Age: 50 Year
  Sex: Female
  Weight: 88.905 kg

DRUGS (16)
  1. IMURAN [Concomitant]
  2. VICODIN (VICODIN) (PARACETAMOL, HYDROCODONE BITARTRATE) [Concomitant]
  3. PREMARIN [Concomitant]
  4. PLAQUENIL [Concomitant]
  5. PREDNISONE TAB [Concomitant]
  6. RESTASIS [Concomitant]
  7. PERCOCET (OXYCOCET) (PARACETAMOL, OXYCODONE HYDROCHLORIDE) [Concomitant]
  8. HYDROXYCHLOROQUINE [Concomitant]
  9. TOPAMAX [Concomitant]
  10. ADVAIR (SERETIDE MITE) (FLUTICASONE PROPIONATE, SALMETEROL XINAFOATE) [Concomitant]
  11. BENLYSTA [Suspect]
     Indication: SYSTEMIC LUPUS ERYTHEMATOSUS
     Dosage: 10 MG/KG, 1 IN 28 D, INTRAVENOUS
     Route: 042
     Dates: start: 20110801, end: 20111021
  12. NEURONTIN [Concomitant]
  13. TEGRETOL [Concomitant]
  14. NEXIUM [Concomitant]
  15. KLONOPIN [Concomitant]
  16. LEVOTHYROXINE SODIUM [Concomitant]

REACTIONS (4)
  - PNEUMONIA [None]
  - ASTHMA [None]
  - CONDITION AGGRAVATED [None]
  - BRONCHITIS [None]
